FAERS Safety Report 9421841 (Version 1)
Quarter: 2013Q3

REPORT INFORMATION
  Report Type: Spontaneous
  Country: CA (occurrence: CA)
  Receive Date: 20130726
  Receipt Date: 20130726
  Transmission Date: 20140515
  Serious: Yes (Death)
  Sender: FDA-Public Use
  Company Number: PHHY2013CA079548

PATIENT
  Age: 35 Year
  Sex: Male

DRUGS (14)
  1. GLEEVEC [Suspect]
     Dosage: 400 MG, QD
     Route: 048
  2. ACETAMINOPHEN [Concomitant]
     Dosage: UNK UKN, UNK
  3. BENZTROPINE [Concomitant]
     Dosage: UNK UKN, UNK
  4. CALCITRIOL [Concomitant]
     Dosage: UNK UKN, UNK
  5. DIMENHYDRINATE [Concomitant]
     Dosage: UNK UKN, UNK
  6. DIPHENHYDRAMINE [Concomitant]
     Dosage: UNK UKN, UNK
  7. DOCUSATE [Concomitant]
     Dosage: UNK UKN, UNK
  8. EPREX [Concomitant]
     Dosage: UNK UKN, UNK
  9. HALOPERIDOL [Concomitant]
     Dosage: UNK UKN, UNK
  10. HYDROXYUREA [Concomitant]
     Dosage: UNK UKN, UNK
  11. PANTOPRAZOLE [Concomitant]
     Dosage: UNK UKN, UNK
  12. TUMS [Concomitant]
     Dosage: UNK UKN, UNK
  13. VITAMIN C [Concomitant]
     Dosage: UNK UKN, UNK
  14. VITAMIN B COMPLEX [Concomitant]
     Dosage: UNK UKN, UNK

REACTIONS (1)
  - Vomiting [Fatal]
